FAERS Safety Report 4747547-6 (Version None)
Quarter: 2005Q3

REPORT INFORMATION
  Report Type: 
  Country: None (occurrence: None)
  Receive Date: 20050818
  Receipt Date: 20040707
  Transmission Date: 20060218
  Serious: No
  Sender: FDA-Public Use
  Company Number: US-BRISTOL-MYERS SQUIBB COMPANY-12633905

PATIENT
  Age: 71 Year
  Sex: Female
  Weight: 57 kg

DRUGS (3)
  1. TEQUIN [Suspect]
     Indication: SEASONAL ALLERGY
     Dosage: DID NOT TAKE MEDICATION ON 08-MAY-2004
     Route: 048
     Dates: start: 20040505, end: 20040509
  2. ZYRTEC [Concomitant]
     Dates: start: 20040505
  3. UNIRETIC [Concomitant]
     Dosage: 15 MG/25 MG

REACTIONS (1)
  - STOMATITIS [None]
